FAERS Safety Report 17415198 (Version 3)
Quarter: 2020Q3

REPORT INFORMATION
  Report Type: Report from Study
  Country: US (occurrence: US)
  Receive Date: 20200213
  Receipt Date: 20200813
  Transmission Date: 20201102
  Serious: No
  Sender: FDA-Public Use
  Company Number: NVSC2020US032952

PATIENT
  Sex: Male

DRUGS (4)
  1. OTEZLA [Concomitant]
     Active Substance: APREMILAST
     Indication: PRODUCT USED FOR UNKNOWN INDICATION
     Dosage: UNK
     Route: 065
  2. STELARA [Concomitant]
     Active Substance: USTEKINUMAB
     Indication: PRODUCT USED FOR UNKNOWN INDICATION
     Dosage: UNK
     Route: 065
  3. COSENTYX [Suspect]
     Active Substance: SECUKINUMAB
     Indication: PSORIASIS
     Dosage: 300 MG, QMO
     Route: 058
  4. COSENTYX [Suspect]
     Active Substance: SECUKINUMAB
     Dosage: UNK
     Route: 065

REACTIONS (7)
  - Immune system disorder [Not Recovered/Not Resolved]
  - Illness [Unknown]
  - Fatigue [Unknown]
  - Decreased appetite [Unknown]
  - Bronchitis [Unknown]
  - Upper respiratory tract congestion [Not Recovered/Not Resolved]
  - Drug ineffective [Not Recovered/Not Resolved]
